FAERS Safety Report 8810055 (Version 1)
Quarter: 2012Q4

REPORT INFORMATION
  Report Type: 
  Country: BR (occurrence: BR)
  Receive Date: 20120926
  Receipt Date: 20120926
  Transmission Date: 20130627
  Serious: Yes (Hospitalization)
  Sender: FDA-Public Use
  Company Number: BR-GLAXOSMITHKLINE-A0995140A

PATIENT
  Age: 7 Year
  Sex: Female

DRUGS (7)
  1. AVAMYS [Suspect]
     Indication: PRODUCT USED FOR UNKNOWN INDICATION
     Route: 045
  2. SYMBICORT [Concomitant]
  3. MONTELUKAST [Concomitant]
     Dosage: 10MG Per day
  4. ACETYLCYSTEINE [Concomitant]
     Dosage: 5ML Twice per day
  5. PATANOL [Concomitant]
     Route: 047
  6. ATROVENT [Concomitant]
  7. ANTIBIOTICS [Concomitant]

REACTIONS (4)
  - Pneumonia [Unknown]
  - Syncope [Unknown]
  - Cough [Unknown]
  - Respiratory tract congestion [Unknown]
